FAERS Safety Report 21161001 (Version 3)
Quarter: 2022Q3

REPORT INFORMATION
  Report Type: Report from Study
  Country: CO (occurrence: CO)
  Receive Date: 20220802
  Receipt Date: 20220823
  Transmission Date: 20221027
  Serious: Yes (Death, Hospitalization)
  Sender: FDA-Public Use
  Company Number: CO-BAYER-2022A096376

PATIENT
  Age: 60 Year
  Sex: Male

DRUGS (1)
  1. STIVARGA [Suspect]
     Active Substance: REGORAFENIB
     Indication: Colorectal cancer metastatic
     Dosage: 160 MG, QD
     Dates: start: 20220701

REACTIONS (9)
  - Multiple organ dysfunction syndrome [Fatal]
  - Inflammation [None]
  - Skin discolouration [Unknown]
  - Labile hypertension [None]
  - Haemoglobin decreased [Unknown]
  - Dysphagia [Unknown]
  - Oral mucosal exfoliation [Unknown]
  - Oropharyngeal discomfort [Unknown]
  - Stomatitis [Unknown]

NARRATIVE: CASE EVENT DATE: 20220704
